FAERS Safety Report 4370147-7 (Version None)
Quarter: 2004Q2

REPORT INFORMATION
  Report Type: 
  Country: None (occurrence: None)
  Receive Date: 20040603
  Receipt Date: 20040422
  Transmission Date: 20050107
  Serious: No
  Sender: FDA-Public Use
  Company Number: US-BRISTOL-MYERS SQUIBB COMPANY-12568366

PATIENT
  Age: 31 Year
  Sex: Female
  Weight: 59 kg

DRUGS (2)
  1. ABILIFY [Suspect]
     Indication: AGITATION
     Route: 048
     Dates: start: 20030601, end: 20040415
  2. LEXAPRO [Concomitant]

REACTIONS (6)
  - CONFUSIONAL STATE [None]
  - DIARRHOEA [None]
  - INSOMNIA [None]
  - NERVOUSNESS [None]
  - SOMNOLENCE [None]
  - VOMITING [None]
